FAERS Safety Report 19349475 (Version 1)
Quarter: 2021Q2

REPORT INFORMATION
  Report Type: Spontaneous
  Country: US (occurrence: US)
  Receive Date: 20210528
  Receipt Date: 20210528
  Transmission Date: 20210717
  Serious: Yes (Hospitalization)
  Sender: FDA-Public Use
  Company Number: None

PATIENT
  Age: 83 Year
  Sex: Male

DRUGS (14)
  1. PROBIOTIC [Concomitant]
     Active Substance: PROBIOTICS NOS
  2. IRBESARTAN. [Concomitant]
     Active Substance: IRBESARTAN
  3. NICARDIPINE?EYE OMEGA [Concomitant]
  4. LUTEN [Concomitant]
  5. COMBIGAN [Concomitant]
     Active Substance: BRIMONIDINE TARTRATE\TIMOLOL MALEATE
  6. IRON [Concomitant]
     Active Substance: IRON
  7. LORATADINE. [Concomitant]
     Active Substance: LORATADINE
  8. DOCUSATE [Concomitant]
     Active Substance: DOCUSATE
  9. LUMIGAN [Concomitant]
     Active Substance: BIMATOPROST
  10. ADVIL [Concomitant]
     Active Substance: IBUPROFEN
  11. TASIGNA [Suspect]
     Active Substance: NILOTINIB
     Indication: CHRONIC MYELOID LEUKAEMIA
     Route: 048
     Dates: start: 20131028
  12. ATORVASTATIN [Concomitant]
     Active Substance: ATORVASTATIN
  13. CALCIUM D [Concomitant]
     Active Substance: CALCIUM\VITAMIN D
  14. ASPIRIN. [Concomitant]
     Active Substance: ASPIRIN

REACTIONS (1)
  - Hospitalisation [None]

NARRATIVE: CASE EVENT DATE: 20210420
